FAERS Safety Report 10014506 (Version 1)
Quarter: 2014Q1

REPORT INFORMATION
  Report Type: Spontaneous
  Country: US (occurrence: US)
  Receive Date: 20140317
  Receipt Date: 20140317
  Transmission Date: 20141002
  Serious: Yes (Hospitalization)
  Sender: FDA-Public Use
  Company Number: US-DAIICHI SANKYO EUROPE GMBH-DSU-2014-100300

PATIENT
  Sex: 0

DRUGS (1)
  1. BENICAR [Suspect]
     Indication: HYPERTENSION
     Dosage: 20 MG, QD

REACTIONS (6)
  - Cardiac arrest [Recovered/Resolved]
  - Malabsorption [Recovered/Resolved]
  - Large intestine perforation [Recovered/Resolved]
  - Colitis [Recovered/Resolved]
  - Inflammation [Recovered/Resolved]
  - Lymphoid tissue hyperplasia [Recovered/Resolved]
